FAERS Safety Report 10632735 (Version 2)
Quarter: 2015Q1

REPORT INFORMATION
  Report Type: Spontaneous
  Country: US (occurrence: US)
  Receive Date: 20141205
  Receipt Date: 20150131
  Transmission Date: 20150720
  Serious: No
  Sender: FDA-Public Use
  Company Number: US-BRISTOL-MYERS SQUIBB COMPANY-21547781

PATIENT
  Sex: Female

DRUGS (1)
  1. SPRYCEL [Suspect]
     Active Substance: DASATINIB
     Indication: CHRONIC MYELOID LEUKAEMIA
     Dosage: YEAR AGO AT 100 MG DAILY
     Route: 048
     Dates: start: 20130128

REACTIONS (6)
  - Clostridium test positive [Unknown]
  - Constipation [Unknown]
  - Diplopia [Unknown]
  - Diarrhoea [Unknown]
  - Dry skin [Unknown]
  - Dry eye [Unknown]
